FAERS Safety Report 22221493 (Version 1)
Quarter: 2023Q2

REPORT INFORMATION
  Report Type: Spontaneous
  Country: CN (occurrence: CN)
  Receive Date: 20230418
  Receipt Date: 20230418
  Transmission Date: 20230722
  Serious: Yes (Hospitalization, Other)
  Sender: FDA-Public Use
  Company Number: CN-TEVA-2023-CN-2877892

PATIENT
  Age: 65 Year
  Sex: Female

DRUGS (2)
  1. BENDAMUSTINE [Suspect]
     Active Substance: BENDAMUSTINE
     Indication: Renal amyloidosis
     Dosage: 90 MG/M2 PER DAY X 2, MONTHLY
     Route: 065
  2. RITUXIMAB [Suspect]
     Active Substance: RITUXIMAB
     Indication: Renal amyloidosis
     Route: 065

REACTIONS (8)
  - Myelosuppression [Unknown]
  - Hypersensitivity [Unknown]
  - Infection [Unknown]
  - Pleural effusion [Unknown]
  - Dyspnoea [Unknown]
  - Diarrhoea [Recovered/Resolved]
  - Pyrexia [Recovered/Resolved]
  - Toxicity to various agents [Unknown]
